FAERS Safety Report 9802825 (Version 1)
Quarter: 2014Q1

REPORT INFORMATION
  Report Type: Spontaneous
  Country: GB (occurrence: GB)
  Receive Date: 20140108
  Receipt Date: 20140108
  Transmission Date: 20141002
  Serious: Yes (Death)
  Sender: FDA-Public Use
  Company Number: GB-ROCHE-1330169

PATIENT
  Age: 87 Year
  Sex: Male

DRUGS (11)
  1. LUCENTIS [Suspect]
     Indication: AGE-RELATED MACULAR DEGENERATION
     Route: 050
     Dates: start: 20130710
  2. LUCENTIS [Suspect]
     Route: 050
     Dates: start: 20130807
  3. FRUSEMIDE [Concomitant]
  4. IRBESARTAN [Concomitant]
  5. LANSOPRAZOLE [Concomitant]
  6. WARFARIN [Concomitant]
  7. ADIZEM [Concomitant]
  8. ASPIRIN [Concomitant]
  9. ATORVASTATIN [Concomitant]
  10. LUMIGAN [Concomitant]
  11. BISOPROLOL [Concomitant]

REACTIONS (1)
  - Myocardial infarction [Fatal]
